FAERS Safety Report 7764202-9 (Version None)
Quarter: 2011Q3

REPORT INFORMATION
  Report Type: 
  Country: None (occurrence: None)
  Receive Date: 20110921
  Receipt Date: 20110912
  Transmission Date: 20111222
  Serious: Yes (Hospitalization)
  Sender: FDA-Public Use
  Company Number: US-VIROPHARMA INCORPORATED-20110824CINRY2219

PATIENT
  Sex: Female

DRUGS (1)
  1. CINRYZE [Suspect]
     Indication: HEREDITARY ANGIOEDEMA
     Dosage: UNKNOWN
     Dates: start: 20100101

REACTIONS (5)
  - LIGAMENT RUPTURE [None]
  - PATELLA FRACTURE [None]
  - FALL [None]
  - URTICARIA [None]
  - MENISCUS LESION [None]
